FAERS Safety Report 19728762 (Version 1)
Quarter: 2021Q3

REPORT INFORMATION
  Report Type: Spontaneous
  Country: US (occurrence: US)
  Receive Date: 20210820
  Receipt Date: 20210820
  Transmission Date: 20211014
  Serious: No
  Sender: FDA-Public Use
  Company Number: US-G1-000304

PATIENT

DRUGS (3)
  1. COSELA [Suspect]
     Active Substance: TRILACICLIB DIHYDROCHLORIDE
     Indication: PRODUCT USED FOR UNKNOWN INDICATION
     Dates: start: 20210513
  2. 1325315 (GLOBALC3SEP20): CARBO [Concomitant]
  3. 1326091 (GLOBALC3SEP20): ETOPOSIDE [Concomitant]

REACTIONS (3)
  - Dyspnoea [Recovered/Resolved]
  - Musculoskeletal stiffness [Recovered/Resolved]
  - Infusion related reaction [Unknown]
